FAERS Safety Report 4708066-6 (Version None)
Quarter: 2005Q3

REPORT INFORMATION
  Report Type: 
  Country: None (occurrence: None)
  Receive Date: 20050707
  Receipt Date: 20050629
  Transmission Date: 20060218
  Serious: Yes (Hospitalization)
  Sender: FDA-Public Use
  Company Number: AU-BOEHRINGER INGELHEIM PHARMACEUTICALS, INC.-2005-BP-11029AU

PATIENT
  Age: 66 Year
  Sex: Female

DRUGS (7)
  1. COMBIVENT [Suspect]
     Route: 055
     Dates: start: 20041004
  2. SALBUTAMOL [Suspect]
     Route: 055
     Dates: start: 20041004
  3. AMLODIPINE [Concomitant]
     Indication: ADVERSE EVENT
     Route: 048
  4. PREDNISOLONE [Concomitant]
     Dates: start: 20041004
  5. SERETIDE (FLUTICASONE/SALMETEROL) [Concomitant]
     Route: 055
  6. PARACETOMOL [Concomitant]
     Indication: ADVERSE EVENT
  7. ACETAMINOPHEN W/ CODEINE [Concomitant]
     Indication: ADVERSE EVENT

REACTIONS (1)
  - MUSCLE SPASMS [None]
